FAERS Safety Report 7480787-4 (Version None)
Quarter: 2011Q2

REPORT INFORMATION
  Report Type: 
  Country: None (occurrence: None)
  Receive Date: 20110506
  Receipt Date: 20110421
  Transmission Date: 20111010
  Serious: Yes (Other)
  Sender: FDA-Public Use
  Company Number: 2010CP000331

PATIENT
  Age: 9 Year
  Sex: Male

DRUGS (5)
  1. ACETAMINOPHEN [Suspect]
     Indication: SINOBRONCHITIS
     Dosage: 60 ML; Q6H; IV
     Route: 042
     Dates: start: 20101106, end: 20101106
  2. SPASFON (PHLOROGLUCINOL) (NO PREF. NAME) [Suspect]
     Dates: start: 20101106, end: 20101108
  3. QUININE SULFATE [Suspect]
     Dates: start: 20101106, end: 20101108
  4. GENTAMICIN [Suspect]
     Dates: start: 20101106, end: 20101108
  5. CEFTRIAXONE [Suspect]
     Dates: start: 20101106, end: 20101108

REACTIONS (3)
  - CHILLS [None]
  - INFUSION RELATED REACTION [None]
  - TONIC CONVULSION [None]
